FAERS Safety Report 16295066 (Version 1)
Quarter: 2019Q2

REPORT INFORMATION
  Report Type: Spontaneous
  Country: US (occurrence: US)
  Receive Date: 20190509
  Receipt Date: 20190509
  Transmission Date: 20190711
  Serious: No
  Sender: FDA-Public Use
  Company Number: US-ROCHE-2215723

PATIENT
  Sex: Female

DRUGS (4)
  1. HYDROCODONE BITARTRATE. [Concomitant]
     Active Substance: HYDROCODONE BITARTRATE
  2. ESBRIET [Suspect]
     Active Substance: PIRFENIDONE
     Indication: PULMONARY FIBROSIS
     Dosage: ONGOING: UNKNOWN
     Route: 048
     Dates: start: 201510
  3. GABAPENTIN. [Concomitant]
     Active Substance: GABAPENTIN
  4. ELIQUIS [Concomitant]
     Active Substance: APIXABAN

REACTIONS (1)
  - Migraine [Unknown]
